FAERS Safety Report 8843737 (Version 1)
Quarter: 2012Q4

REPORT INFORMATION
  Report Type: 
  Country: LT (occurrence: LT)
  Receive Date: 20121017
  Receipt Date: 20121017
  Transmission Date: 20130627
  Serious: Yes (Other)
  Sender: FDA-Public Use
  Company Number: LT-AMGEN-LTUSP2012065231

PATIENT
  Age: 75 Year
  Sex: Female

DRUGS (2)
  1. PROLIA [Suspect]
     Indication: OSTEOPOROSIS POSTMENOPAUSAL
     Dosage: 60 mg, q6mo
     Route: 058
     Dates: start: 20120617
  2. MABTHERA [Concomitant]
     Dosage: UNK
     Dates: start: 2009

REACTIONS (2)
  - Abscess jaw [Recovered/Resolved]
  - Osteonecrosis of jaw [Recovered/Resolved]
